FAERS Safety Report 10564468 (Version 2)
Quarter: 2014Q4

REPORT INFORMATION
  Report Type: Report from Study
  Country: US (occurrence: US)
  Receive Date: 20141104
  Receipt Date: 20141119
  Transmission Date: 20150529
  Serious: Yes (Hospitalization)
  Sender: FDA-Public Use
  Company Number: US-GILEAD-2014-0120883

PATIENT
  Age: 51 Year
  Sex: Female

DRUGS (1)
  1. IDELALISIB [Suspect]
     Active Substance: IDELALISIB
     Indication: LYMPHOMA
     Dosage: 300 MG, UNK
     Route: 048
     Dates: start: 20140905

REACTIONS (4)
  - Dehydration [Unknown]
  - Pain [Unknown]
  - Blood potassium decreased [Unknown]
  - Blood sodium decreased [Unknown]
